FAERS Safety Report 13133270 (Version 2)
Quarter: 2017Q1

REPORT INFORMATION
  Report Type: Spontaneous
  Country: JP (occurrence: JP)
  Receive Date: 20170120
  Receipt Date: 20170220
  Transmission Date: 20170428
  Serious: Yes (Other)
  Sender: FDA-Public Use
  Company Number: JP-009507513-1701JPN008142

PATIENT
  Age: 14 Year
  Sex: Female

DRUGS (3)
  1. BEVACIZUMAB [Suspect]
     Active Substance: BEVACIZUMAB
     Indication: CHEMOTHERAPY
     Dosage: UNK
  2. TEMODAL [Suspect]
     Active Substance: TEMOZOLOMIDE
     Dosage: 3 KUR OF TEMOZOLOMIDE
     Route: 065
  3. TEMODAL [Suspect]
     Active Substance: TEMOZOLOMIDE
     Indication: CHEMOTHERAPY
     Dosage: UNK
     Route: 065

REACTIONS (3)
  - Metastatic neoplasm [Unknown]
  - Depressed level of consciousness [Unknown]
  - Drug ineffective [Unknown]
